FAERS Safety Report 19232214 (Version 1)
Quarter: 2021Q2

REPORT INFORMATION
  Report Type: Spontaneous
  Country: US (occurrence: US)
  Receive Date: 20210507
  Receipt Date: 20210507
  Transmission Date: 20210717
  Serious: Yes (Life-Threatening, Hospitalization, Other)
  Sender: FDA-Public Use
  Company Number: US-ACCORD-224251

PATIENT
  Age: 61 Year
  Sex: Male

DRUGS (2)
  1. TOFACITINIB [Concomitant]
     Active Substance: TOFACITINIB
     Indication: RHEUMATOID ARTHRITIS
  2. METHOTREXATE. [Suspect]
     Active Substance: METHOTREXATE
     Indication: RHEUMATOID ARTHRITIS

REACTIONS (8)
  - Diffuse large B-cell lymphoma [Unknown]
  - Haemophagocytic lymphohistiocytosis [Unknown]
  - Liver function test abnormal [Unknown]
  - Pancytopenia [Unknown]
  - Lymphoproliferative disorder [Unknown]
  - Hypercalcaemia [Unknown]
  - Cardiac arrest [Unknown]
  - Acute kidney injury [Unknown]
